FAERS Safety Report 17924042 (Version 1)
Quarter: 2020Q2

REPORT INFORMATION
  Report Type: Report from Study
  Country: US (occurrence: US)
  Receive Date: 20200622
  Receipt Date: 20200622
  Transmission Date: 20200714
  Serious: Yes (Other)
  Sender: FDA-Public Use
  Company Number: US-ACADIA PHARMACEUTICALS INC.-ACA-2020-PIM-001979

PATIENT
  Sex: Female

DRUGS (3)
  1. NUPLAZID [Suspect]
     Active Substance: PIMAVANSERIN TARTRATE
     Indication: PARKINSON^S DISEASE
     Dosage: 10 MILLIGRAM, QD
     Route: 048
  2. SEROQUEL [Suspect]
     Active Substance: QUETIAPINE FUMARATE
     Indication: PRODUCT USED FOR UNKNOWN INDICATION
  3. RISPERIDONE. [Suspect]
     Active Substance: RISPERIDONE
     Indication: PRODUCT USED FOR UNKNOWN INDICATION

REACTIONS (15)
  - Nonspecific reaction [Unknown]
  - Cognitive disorder [Unknown]
  - Adjustment disorder with mixed anxiety and depressed mood [Unknown]
  - Underdose [Unknown]
  - Psychotic disorder [Unknown]
  - Hyperthyroidism [Unknown]
  - Adjustment disorder with anxiety [Unknown]
  - Depression [Unknown]
  - Memory impairment [Unknown]
  - Glomerular filtration rate decreased [Unknown]
  - Hypertension [Unknown]
  - Fall [Unknown]
  - Hallucination, auditory [Unknown]
  - Dizziness [Unknown]
  - Major depression [Unknown]
